FAERS Safety Report 6797659-0 (Version None)
Quarter: 2010Q2

REPORT INFORMATION
  Report Type: 
  Country: None (occurrence: None)
  Receive Date: 20100623
  Receipt Date: 20100610
  Transmission Date: 20101027
  Serious: Yes (Hospitalization, Disabling, Other)
  Sender: FDA-Public Use
  Company Number: 2010AL003512

PATIENT
  Age: 72 Year
  Sex: 0

DRUGS (6)
  1. CITALOPRAM HYDROBROMIDE [Suspect]
     Indication: DEPRESSION
     Dosage: 5 MG; PO
     Route: 048
     Dates: start: 20091101
  2. OLANZAPINE [Concomitant]
  3. MIRTAZAPINE [Concomitant]
  4. FUROSEMIDE [Concomitant]
  5. DICLOFENAC SODIUM [Concomitant]
  6. OMEPRAZOLE [Concomitant]

REACTIONS (1)
  - PARKINSON'S DISEASE [None]
